FAERS Safety Report 16653637 (Version 1)
Quarter: 2019Q3

REPORT INFORMATION
  Report Type: Spontaneous
  Country: US (occurrence: US)
  Receive Date: 20190731
  Receipt Date: 20190731
  Transmission Date: 20191004
  Serious: No
  Sender: FDA-Public Use
  Company Number: US-ELI_LILLY_AND_COMPANY-US201907009072

PATIENT
  Sex: Female

DRUGS (1)
  1. EMGALITY [Suspect]
     Active Substance: GALCANEZUMAB-GNLM
     Indication: MIGRAINE
     Dosage: UNK UNK, MONTHLY (1/M)
     Route: 065
     Dates: start: 2019

REACTIONS (4)
  - Underdose [Unknown]
  - Accidental underdose [Unknown]
  - Migraine [Unknown]
  - Wrong schedule [Unknown]

NARRATIVE: CASE EVENT DATE: 2019
